FAERS Safety Report 10128108 (Version 1)
Quarter: 2014Q2

REPORT INFORMATION
  Report Type: Report from Study
  Country: AT (occurrence: AT)
  Receive Date: 20140428
  Receipt Date: 20140428
  Transmission Date: 20141212
  Serious: Yes (Death, Life-Threatening)
  Sender: FDA-Public Use
  Company Number: AT-ROCHE-1379873

PATIENT
  Sex: Female
  Weight: 72 kg

DRUGS (3)
  1. PEG-INTERFERON ALFA 2A [Suspect]
     Indication: HEPATITIS C
     Route: 065
     Dates: start: 20101012, end: 20110127
  2. RIBAVIRIN [Suspect]
     Indication: HEPATITIS C
     Route: 065
     Dates: start: 20101012, end: 20110127
  3. SUBSTITOL [Concomitant]
     Route: 065

REACTIONS (5)
  - Leukopenia [Fatal]
  - Weight decreased [Fatal]
  - Nausea [Unknown]
  - Fatigue [Unknown]
  - Pruritus [Unknown]
